FAERS Safety Report 21289966 (Version 1)
Quarter: 2022Q3

REPORT INFORMATION
  Report Type: Spontaneous
  Country: PT (occurrence: PT)
  Receive Date: 20220902
  Receipt Date: 20220902
  Transmission Date: 20221027
  Serious: Yes (Other)
  Sender: FDA-Public Use
  Company Number: None

PATIENT
  Age: 42 Year
  Sex: Female

DRUGS (2)
  1. NEXAVAR [Suspect]
     Active Substance: SORAFENIB
     Indication: Phaeochromocytoma
     Dosage: 800 MG (CYCLICAL)
     Route: 048
     Dates: start: 20180307, end: 20220811
  2. NEXAVAR [Suspect]
     Active Substance: SORAFENIB
     Indication: Paraganglion neoplasm

REACTIONS (3)
  - Phaeochromocytoma [Unknown]
  - Paraganglion neoplasm [Unknown]
  - Drug ineffective [None]

NARRATIVE: CASE EVENT DATE: 20220101
